FAERS Safety Report 13639413 (Version 1)
Quarter: 2017Q2

REPORT INFORMATION
  Report Type: Spontaneous
  Country: US (occurrence: US)
  Receive Date: 20170609
  Receipt Date: 20170609
  Transmission Date: 20170830
  Serious: No
  Sender: FDA-Public Use
  Company Number: US-ROCHE-1453248

PATIENT
  Age: 84 Year
  Sex: Female

DRUGS (1)
  1. CLONAZEPAM. [Suspect]
     Active Substance: CLONAZEPAM
     Indication: INSOMNIA
     Dosage: TAKES AT BEDTIME (0.5 IN A DAY)
     Route: 065

REACTIONS (2)
  - Drug ineffective [Unknown]
  - Abdominal pain upper [Not Recovered/Not Resolved]
